FAERS Safety Report 19393223 (Version 1)
Quarter: 2021Q2

REPORT INFORMATION
  Report Type: Spontaneous
  Country: US (occurrence: US)
  Receive Date: 20210608
  Receipt Date: 20210608
  Transmission Date: 20210717
  Serious: Yes (Hospitalization)
  Sender: FDA-Public Use
  Company Number: None

PATIENT
  Age: 66 Year
  Sex: Female
  Weight: 95.71 kg

DRUGS (2)
  1. BYDUREON BCISE [Suspect]
     Active Substance: EXENATIDE
     Indication: TYPE 2 DIABETES MELLITUS
     Dosage: ?          OTHER FREQUENCY:ONCE WEEKLY;?
     Route: 058
     Dates: start: 20210604
  2. GLIMEPIRIDE 4MG [Concomitant]
     Active Substance: GLIMEPIRIDE

REACTIONS (11)
  - Hypoglycaemia [None]
  - Decreased appetite [None]
  - Nausea [None]
  - Dizziness [None]
  - Vomiting [None]
  - Acute kidney injury [None]
  - Muscular weakness [None]
  - Therapy interrupted [None]
  - Malaise [None]
  - Abdominal distension [None]
  - Urinary tract infection [None]

NARRATIVE: CASE EVENT DATE: 20210606
